FAERS Safety Report 12143750 (Version 1)
Quarter: 2016Q1

REPORT INFORMATION
  Report Type: Spontaneous
  Country: US (occurrence: US)
  Receive Date: 20160304
  Receipt Date: 20160304
  Transmission Date: 20160526
  Serious: No
  Sender: FDA-Public Use
  Company Number: US-JNJFOC-20160209791

PATIENT
  Age: 17 Year
  Sex: Female
  Weight: 63.96 kg

DRUGS (2)
  1. ZYRTEC [Suspect]
     Active Substance: CETIRIZINE HYDROCHLORIDE
     Indication: FOOD ALLERGY
     Dosage: 1-2 TABLETS (10 TO 20 MG)
     Route: 048
  2. ZYRTEC [Suspect]
     Active Substance: CETIRIZINE HYDROCHLORIDE
     Indication: DRUG HYPERSENSITIVITY
     Dosage: 1-2 TABLETS (10 TO 20 MG)
     Route: 048

REACTIONS (3)
  - Off label use [Unknown]
  - Overdose [Unknown]
  - Product use issue [Unknown]
